FAERS Safety Report 4611027-9 (Version None)
Quarter: 2005Q1

REPORT INFORMATION
  Report Type: 
  Country: None (occurrence: None)
  Receive Date: 20050317
  Receipt Date: 20050309
  Transmission Date: 20050727
  Serious: Yes (Hospitalization)
  Sender: FDA-Public Use
  Company Number: 200512213GDDC

PATIENT
  Age: 48 Year
  Sex: Female

DRUGS (3)
  1. CLEXANE [Suspect]
     Route: 058
     Dates: start: 20030701, end: 20030702
  2. METOCLOPRAMIDE [Concomitant]
     Route: 048
     Dates: start: 20030701
  3. CYCLIZINE [Concomitant]
     Route: 042
     Dates: start: 20030701

REACTIONS (4)
  - ANAEMIA [None]
  - HAEMATOMA [None]
  - HYPOTENSION [None]
  - POST PROCEDURAL HAEMORRHAGE [None]
